FAERS Safety Report 4972892-9 (Version None)
Quarter: 2006Q2

REPORT INFORMATION
  Report Type: 
  Country: None (occurrence: None)
  Receive Date: 20060410
  Receipt Date: 20060322
  Transmission Date: 20061013
  Serious: Yes (Other)
  Sender: FDA-Public Use
  Company Number: ENT 2006-0045

PATIENT
  Age: 61 Year
  Sex: Female

DRUGS (3)
  1. COMTAN [Suspect]
     Indication: PARKINSON'S DISEASE
     Dosage: 200 MG, 1 IN 1 D, ORAL
     Route: 048
  2. SINEMET [Concomitant]
  3. REQUIP [Concomitant]

REACTIONS (4)
  - ANXIETY [None]
  - DRUG EFFECT INCREASED [None]
  - HEART RATE INCREASED [None]
  - STRESS [None]
